FAERS Safety Report 5392418-8 (Version None)
Quarter: 2007Q3

REPORT INFORMATION
  Report Type: 
  Country: None (occurrence: None)
  Receive Date: 20070720
  Receipt Date: 20070712
  Transmission Date: 20080115
  Serious: Yes (Hospitalization)
  Sender: FDA-Public Use
  Company Number: B0479370A

PATIENT
  Age: 70 Year
  Sex: Female

DRUGS (5)
  1. PAROXETINE HCL [Suspect]
     Indication: DEPRESSION
     Route: 048
     Dates: start: 20050101, end: 20070606
  2. ZYVOX [Suspect]
     Route: 042
     Dates: start: 20070602, end: 20070606
  3. LASIX [Suspect]
     Dates: start: 20070525
  4. LOXEN [Suspect]
     Dates: start: 20070604
  5. ACETAMINOPHEN AND TRAMADOL HCL [Suspect]
     Route: 048
     Dates: start: 20070602

REACTIONS (2)
  - COMA [None]
  - CONVULSION [None]
